FAERS Safety Report 17239916 (Version 1)
Quarter: 2020Q1

REPORT INFORMATION
  Report Type: Report from Study
  Country: US (occurrence: US)
  Receive Date: 20200106
  Receipt Date: 20200106
  Transmission Date: 20200409
  Serious: Yes (Death)
  Sender: FDA-Public Use
  Company Number: US-TEVA-2020-US-1163098

PATIENT
  Age: 53 Year
  Sex: Female

DRUGS (1)
  1. ALMOTRIPTAN. [Suspect]
     Active Substance: ALMOTRIPTAN
     Indication: INTENTIONAL OVERDOSE
     Route: 048

REACTIONS (1)
  - Intentional overdose [Fatal]
